FAERS Safety Report 20032695 (Version 1)
Quarter: 2021Q4

REPORT INFORMATION
  Report Type: Spontaneous
  Country: DE (occurrence: DE)
  Receive Date: 20211104
  Receipt Date: 20211104
  Transmission Date: 20220303
  Serious: Yes (Hospitalization, Other)
  Sender: FDA-Public Use
  Company Number: DE-002147023-PHHY2019DE019178

PATIENT
  Age: 70 Year
  Sex: Male
  Weight: 99 kg

DRUGS (52)
  1. AMLODIPINE BESYLATE [Suspect]
     Active Substance: AMLODIPINE BESYLATE
     Route: 065
  2. VALSARTAN [Suspect]
     Active Substance: VALSARTAN
     Indication: Hypertension
     Dosage: 160 MG, QD
     Route: 065
     Dates: start: 201402, end: 201506
  3. VALSARTAN [Suspect]
     Active Substance: VALSARTAN
     Indication: Hypertension
     Dosage: 1 DF, QD (320/25 MG, ONCE PER DAY, IN THE MORNINGS)
     Route: 048
     Dates: start: 201505, end: 201808
  4. VALSARTAN [Suspect]
     Active Substance: VALSARTAN
     Dosage: 320 MG, QD
     Route: 065
     Dates: start: 2015, end: 201807
  5. ASPIRIN [Suspect]
     Active Substance: ASPIRIN
     Indication: Arteriosclerosis coronary artery
     Dosage: 100 DF, QOD (EVERY SECOND DAY)
     Route: 065
  6. ASPIRIN [Suspect]
     Active Substance: ASPIRIN
     Dosage: 100 DF, QD
     Route: 048
     Dates: start: 201808
  7. SOLARAZE [Suspect]
     Active Substance: DICLOFENAC SODIUM
     Indication: Actinic keratosis
     Dosage: 3 %
     Route: 065
     Dates: start: 201810
  8. HYDROCHLOROTHIAZIDE\VALSARTAN [Suspect]
     Active Substance: HYDROCHLOROTHIAZIDE\VALSARTAN
     Indication: Hypertension
     Dosage: 1 DF, QD (PER DAY, IN THE MORNINGS)
     Route: 048
     Dates: start: 201505, end: 201808
  9. METOPROLOL SUCCINATE [Suspect]
     Active Substance: METOPROLOL SUCCINATE
     Indication: Hypertension
     Route: 065
  10. HYDROCHLOROTHIAZIDE\VALSARTAN [Suspect]
     Active Substance: HYDROCHLOROTHIAZIDE\VALSARTAN
     Indication: Hypertension
     Dosage: 1 DF, QD (320/25)
     Route: 048
  11. HYDROCHLOROTHIAZIDE\VALSARTAN [Suspect]
     Active Substance: HYDROCHLOROTHIAZIDE\VALSARTAN
     Dosage: 1 DF, QD (160/25)
     Route: 048
     Dates: start: 201512
  12. HYDROCHLOROTHIAZIDE\VALSARTAN [Suspect]
     Active Substance: HYDROCHLOROTHIAZIDE\VALSARTAN
     Route: 065
  13. HAVRIX [Concomitant]
     Active Substance: HEPATITIS A VIRUS STRAIN HM175 ANTIGEN (FORMALDEHYDE INACTIVATED)
     Indication: Product used for unknown indication
     Route: 065
     Dates: start: 20190916, end: 20190916
  14. CLARITHROMYCIN [Concomitant]
     Active Substance: CLARITHROMYCIN
     Indication: Product used for unknown indication
     Dosage: 500 MG, BID (DAILY IN THE MORNING AND IN THE EVENING)
     Route: 065
  15. TORSEMIDE [Concomitant]
     Active Substance: TORSEMIDE
     Indication: Product used for unknown indication
     Dosage: 10 MG
     Route: 065
  16. PANTOPRAZOLE SODIUM [Concomitant]
     Active Substance: PANTOPRAZOLE SODIUM
     Indication: Product used for unknown indication
     Dosage: 40 MG, QD (ONCE DAILY IN THE MORNING)
     Route: 065
  17. HERZASS [Concomitant]
     Indication: Product used for unknown indication
     Dosage: 100 MG
     Route: 065
  18. MYOPRIDIN [Concomitant]
     Indication: Product used for unknown indication
     Dosage: 3 MG
     Route: 065
  19. METOPROLOL SUCCINATE [Concomitant]
     Active Substance: METOPROLOL SUCCINATE
     Indication: Product used for unknown indication
     Dosage: 1 DF, QD
     Route: 065
  20. METOPROLOL SUCCINATE [Concomitant]
     Active Substance: METOPROLOL SUCCINATE
     Indication: Product used for unknown indication
     Route: 065
  21. METOPROLOL SUCCINATE [Concomitant]
     Active Substance: METOPROLOL SUCCINATE
     Dosage: 95 MG, QD
     Route: 065
     Dates: start: 2014
  22. DECODERM TRI [FLUPREDNIDENE ACETATE;MICONAZOLE NITRATE] [Concomitant]
     Indication: Product used for unknown indication
     Route: 065
  23. AZELASTIN COMOD [Concomitant]
     Indication: Product used for unknown indication
     Route: 065
  24. METOPROLOL SUCCINATE [Concomitant]
     Active Substance: METOPROLOL SUCCINATE
     Indication: Product used for unknown indication
     Dosage: 95 MG, QD (ONCE DAILY IN THE MORNING)
     Route: 065
     Dates: start: 20170926
  25. METOPROLOL SUCCINATE [Concomitant]
     Active Substance: METOPROLOL SUCCINATE
     Dosage: 1 DF, QD
     Route: 065
     Dates: start: 20171018, end: 20171024
  26. METOPROLOL [Concomitant]
     Active Substance: METOPROLOL
     Indication: Hypertension
     Dosage: 95 MG, QD
     Route: 048
  27. DICLOFENAC SODIUM [Concomitant]
     Active Substance: DICLOFENAC SODIUM
     Indication: Product used for unknown indication
     Route: 065
  28. METAMIZOL ARISTO [METAMIZOLE SODIUM] [Concomitant]
     Indication: Product used for unknown indication
     Route: 065
  29. POSTERICORT [Concomitant]
     Indication: Product used for unknown indication
     Route: 065
  30. HAVRIX [Concomitant]
     Active Substance: HEPATITIS A VIRUS STRAIN HM175 ANTIGEN (FORMALDEHYDE INACTIVATED)
     Indication: Product used for unknown indication
     Route: 065
  31. SIMVASTATINE A [Concomitant]
     Indication: Product used for unknown indication
     Dosage: 20 MG
     Route: 065
  32. SIMVASTATIN [Concomitant]
     Active Substance: SIMVASTATIN
     Indication: Product used for unknown indication
     Route: 005
  33. CANDESARTAN CILEXETIL\HYDROCHLOROTHIAZIDE [Concomitant]
     Active Substance: CANDESARTAN CILEXETIL\HYDROCHLOROTHIAZIDE
     Indication: Product used for unknown indication
     Route: 065
  34. CANDESARTAN CILEXETIL\HYDROCHLOROTHIAZIDE [Concomitant]
     Active Substance: CANDESARTAN CILEXETIL\HYDROCHLOROTHIAZIDE
     Route: 065
  35. KETOTIFEN [Concomitant]
     Active Substance: KETOTIFEN
     Indication: Product used for unknown indication
     Route: 065
  36. AMINOPHYLLINE\QUININE SULFATE [Concomitant]
     Active Substance: AMINOPHYLLINE\QUININE SULFATE
     Indication: Muscle spasms
     Route: 065
  37. ARCOXIA [Concomitant]
     Active Substance: ETORICOXIB
     Indication: Product used for unknown indication
     Dosage: 90 MG
     Route: 065
  38. SODIUM PICOSULFATE [Concomitant]
     Active Substance: SODIUM PICOSULFATE
     Indication: Product used for unknown indication
     Route: 065
     Dates: start: 20200916, end: 20200916
  39. KALINOR [Concomitant]
     Indication: Product used for unknown indication
     Route: 065
  40. PANTOPRAZOLE SODIUM [Concomitant]
     Active Substance: PANTOPRAZOLE SODIUM
     Indication: Product used for unknown indication
     Dosage: 40 MG, QD (ONCE DAILY IN THE MORNING)
     Route: 065
  41. EXFORGE HCT [Concomitant]
     Active Substance: AMLODIPINE BESYLATE\HYDROCHLOROTHIAZIDE\VALSARTAN
     Indication: Hypertension
     Route: 065
  42. DIPHTHERIA AND TETANUS VACCINES [Concomitant]
     Indication: Product used for unknown indication
     Route: 065
     Dates: start: 20190912, end: 20190912
  43. RASILEZ [Concomitant]
     Active Substance: ALISKIREN
     Indication: Hypertension
     Dosage: 300 MG, QD (1X DAILY (MORNING))
     Route: 065
  44. ASPIRIN [Concomitant]
     Active Substance: ASPIRIN
     Indication: Product used for unknown indication
     Dosage: 100 MG
     Route: 065
  45. METOPROLOL [Concomitant]
     Active Substance: METOPROLOL
     Indication: Product used for unknown indication
     Route: 065
  46. CROMOLYN SODIUM [Concomitant]
     Active Substance: CROMOLYN SODIUM
     Indication: Product used for unknown indication
     Route: 065
  47. PERENTEROL [Concomitant]
     Active Substance: SACCHAROMYCES CEREVISIAE
     Indication: Product used for unknown indication
     Dosage: 250 MG, BID (DAILY IN THE MORNING AND IN THE EVENING)
     Route: 065
  48. CALCIUM CHLORIDE\MAGNESIUM CHLORIDE\POTASSIUM CHLORIDE\SODIUM ACETATE\ [Concomitant]
     Active Substance: CALCIUM CHLORIDE\MAGNESIUM CHLORIDE\POTASSIUM CHLORIDE\SODIUM ACETATE\SODIUM CHLORIDE
     Indication: Product used for unknown indication
     Dosage: 100 ML, UNK
     Route: 065
     Dates: start: 20171020, end: 20171020
  49. CANDESARTAN [Concomitant]
     Active Substance: CANDESARTAN
     Indication: Product used for unknown indication
     Dosage: 1 DF, QD
     Route: 065
  50. EPI PEVARYL [Concomitant]
     Indication: Product used for unknown indication
     Route: 065
  51. VALSARTAN AND HYDROCHLOROTHIAZIDE [Concomitant]
     Active Substance: HYDROCHLOROTHIAZIDE\VALSARTAN
     Indication: Product used for unknown indication
     Dosage: 1 DF, QD (1-0-0)
     Route: 065
     Dates: start: 20171018, end: 20171018
  52. VALSARTAN AND HYDROCHLOROTHIAZIDE [Concomitant]
     Active Substance: HYDROCHLOROTHIAZIDE\VALSARTAN
     Dosage: 1 DF, QD (1-0-0)
     Route: 065
     Dates: start: 20171020, end: 20171024

REACTIONS (74)
  - Abdominal pain upper [Recovering/Resolving]
  - Fear [Unknown]
  - Inflammation [Recovering/Resolving]
  - Chromaturia [Recovering/Resolving]
  - Jaundice [Recovering/Resolving]
  - Hydrocholecystis [Recovering/Resolving]
  - Peritoneal adhesions [Unknown]
  - Back pain [Recovering/Resolving]
  - Gallbladder disorder [Recovering/Resolving]
  - Cholecystitis [Recovering/Resolving]
  - Chills [Recovering/Resolving]
  - Pain [Unknown]
  - Chest pain [Recovering/Resolving]
  - Gastrointestinal submucosal tumour [Recovered/Resolved]
  - Pyrexia [Recovering/Resolving]
  - Cholestasis [Recovering/Resolving]
  - Adhesion [Recovering/Resolving]
  - Spinal cord disorder [Unknown]
  - Blood pressure increased [Recovered/Resolved]
  - Blood thyroid stimulating hormone increased [Unknown]
  - Polyneuropathy [Unknown]
  - Cardiac valve sclerosis [Unknown]
  - Hypothyroidism [Unknown]
  - Diastolic dysfunction [Unknown]
  - Hepatic cirrhosis [Unknown]
  - Erectile dysfunction [Unknown]
  - Gastritis erosive [Unknown]
  - Hypokalaemia [Unknown]
  - Helicobacter gastritis [Unknown]
  - Aortic valve incompetence [Unknown]
  - Infusion site thrombosis [Unknown]
  - Ill-defined disorder [Unknown]
  - Oedema [Unknown]
  - Obesity [Unknown]
  - Costovertebral angle tenderness [Unknown]
  - Cerebral arteriosclerosis [Unknown]
  - PO2 increased [Unknown]
  - Haemoglobin decreased [Unknown]
  - Hepatic steatosis [Unknown]
  - PCO2 decreased [Unknown]
  - Pain [Recovered/Resolved]
  - Gastrooesophageal reflux disease [Unknown]
  - pH body fluid increased [Unknown]
  - Disturbance in social behaviour [Unknown]
  - Left atrial enlargement [Unknown]
  - Duodenitis [Unknown]
  - Blood creatine phosphokinase increased [Unknown]
  - Blood sodium decreased [Unknown]
  - Arteriosclerosis [Unknown]
  - Sleep apnoea syndrome [Unknown]
  - Diarrhoea [Recovered/Resolved]
  - Bundle branch block right [Unknown]
  - Platelet count increased [Unknown]
  - Bursitis [Unknown]
  - Night sweats [Unknown]
  - Hypercholesterolaemia [Unknown]
  - White blood cell count increased [Unknown]
  - Mental disorder [Unknown]
  - Nasopharyngitis [Unknown]
  - Blood potassium decreased [Unknown]
  - Skin lesion [Unknown]
  - Contusion [Unknown]
  - Haematocrit decreased [Unknown]
  - Epistaxis [Unknown]
  - Hypertensive heart disease [Unknown]
  - Hiatus hernia [Unknown]
  - Pain in extremity [Unknown]
  - Leukocytosis [Unknown]
  - Fall [Unknown]
  - Spinal disorder [Unknown]
  - Productive cough [Unknown]
  - Hypoaesthesia [Unknown]
  - Faeces soft [Unknown]
  - Oxygen saturation increased [Unknown]

NARRATIVE: CASE EVENT DATE: 20170201
